FAERS Safety Report 14321081 (Version 1)
Quarter: 2017Q4

REPORT INFORMATION
  Report Type: Spontaneous
  Country: JP (occurrence: JP)
  Receive Date: 20171223
  Receipt Date: 20171223
  Transmission Date: 20180321
  Serious: Yes (Death, Other)
  Sender: FDA-Public Use
  Company Number: JP-NOVOPROD-576326

PATIENT
  Age: 79 Year
  Sex: Female
  Weight: 55 kg

DRUGS (4)
  1. TAKEPRON [Concomitant]
     Active Substance: LANSOPRAZOLE
     Dosage: UNK
     Route: 048
  2. KINEDAK [Concomitant]
     Active Substance: EPALRESTAT
     Dosage: UNK
     Route: 048
  3. MARIZEV [Concomitant]
     Dosage: UNK
     Route: 048
  4. RYZODEG 70/30 [Suspect]
     Active Substance: INSULIN ASPART\INSULIN DEGLUDEC
     Indication: TYPE 2 DIABETES MELLITUS
     Dosage: UNK
     Route: 058
     Dates: start: 201606

REACTIONS (2)
  - Death [Fatal]
  - Loss of consciousness [Unknown]

NARRATIVE: CASE EVENT DATE: 201705
